FAERS Safety Report 7562369-9 (Version None)
Quarter: 2011Q2

REPORT INFORMATION
  Report Type: 
  Country: None (occurrence: None)
  Receive Date: 20110614
  Receipt Date: 20110601
  Transmission Date: 20111010
  Serious: Yes (Hospitalization, Other)
  Sender: FDA-Public Use
  Company Number: 2011MA006674

PATIENT
  Age: 46 Year
  Sex: Male

DRUGS (4)
  1. HYDROMORPHONE HCL [Concomitant]
  2. DEXAMETHASONE [Concomitant]
  3. FENTANYL-100 [Concomitant]
  4. PHENYTOIN [Suspect]
     Indication: CONVULSION

REACTIONS (2)
  - STEVENS-JOHNSON SYNDROME [None]
  - DERMATITIS ALLERGIC [None]
